FAERS Safety Report 7649165-9 (Version None)
Quarter: 2011Q3

REPORT INFORMATION
  Report Type: 
  Country: None (occurrence: None)
  Receive Date: 20110721
  Receipt Date: 20110707
  Transmission Date: 20111222
  Serious: Yes (Other)
  Sender: FDA-Public Use
  Company Number: US-IGSA-IG882

PATIENT
  Age: 17 Year
  Sex: Female
  Weight: 151.3 kg

DRUGS (4)
  1. KEFLEX [Concomitant]
  2. FLEBOGAMMA [Suspect]
     Indication: PRIMARY IMMUNODEFICIENCY SYNDROME
     Dosage: 50 G
     Dates: start: 20110301, end: 20110701
  3. ZYRTEC [Concomitant]
  4. METFORMIN HCL [Concomitant]

REACTIONS (7)
  - PAIN IN EXTREMITY [None]
  - FALL [None]
  - HAEMATOMA [None]
  - INFUSION RELATED REACTION [None]
  - DYSPNOEA [None]
  - GRAND MAL CONVULSION [None]
  - BLOOD PRESSURE DECREASED [None]
